FAERS Safety Report 13959402 (Version 2)
Quarter: 2018Q1

REPORT INFORMATION
  Report Type: Spontaneous
  Country: US (occurrence: US)
  Receive Date: 20170911
  Receipt Date: 20180103
  Transmission Date: 20180508
  Serious: Yes (Hospitalization, Other)
  Sender: FDA-Public Use
  Company Number: US-DSJP-DSU-2017-135931

PATIENT

DRUGS (2)
  1. BENICAR [Suspect]
     Active Substance: OLMESARTAN MEDOXOMIL
     Indication: PRODUCT USED FOR UNKNOWN INDICATION
     Dosage: 40 MG, QD
     Route: 048
     Dates: start: 20110127, end: 201212
  2. BENICAR [Suspect]
     Active Substance: OLMESARTAN MEDOXOMIL
     Dosage: 20 MG HALF TABLET , QD
     Route: 048
     Dates: start: 20081006, end: 20090111

REACTIONS (8)
  - Drug administration error [Unknown]
  - Dehydration [Recovered/Resolved]
  - Duodenitis [Unknown]
  - Gastroenteritis [Recovering/Resolving]
  - Gastritis [Unknown]
  - Gastric polyps [Unknown]
  - Appendicitis [Recovered/Resolved]
  - Hypokalaemia [Recovering/Resolving]

NARRATIVE: CASE EVENT DATE: 20081006
